FAERS Safety Report 9254207 (Version 1)
Quarter: 2013Q2

REPORT INFORMATION
  Report Type: Spontaneous
  Country: US (occurrence: US)
  Receive Date: 20130425
  Receipt Date: 20130425
  Transmission Date: 20140414
  Serious: Yes (Other)
  Sender: FDA-Public Use
  Company Number: PHEH2013US009121

PATIENT
  Sex: Female

DRUGS (8)
  1. MYFORTIC [Suspect]
     Dosage: 180 MG, QID
  2. PREDNISONE [Concomitant]
     Dosage: 5 MG, UNK
  3. PROGRAF [Concomitant]
     Dosage: 1 MG, TID
  4. BACTRIM [Concomitant]
     Dosage: UNK UKN, UNK
  5. WARFARIN [Concomitant]
     Dosage: 5 MG, UNK
  6. FUROSEMIDE [Concomitant]
     Dosage: 40 MG, BID
  7. PEPCID [Concomitant]
     Dosage: 20 MG, UNK
  8. MULTI-VIT [Concomitant]
     Dosage: UNK UKN, UNK

REACTIONS (6)
  - Thrombosis [Unknown]
  - Macular degeneration [Unknown]
  - Faeces discoloured [Unknown]
  - Local swelling [Unknown]
  - Diarrhoea [Unknown]
  - Flatulence [Unknown]
